FAERS Safety Report 7810879-9 (Version None)
Quarter: 2011Q4

REPORT INFORMATION
  Report Type: 
  Country: None (occurrence: None)
  Receive Date: 20111013
  Receipt Date: 20111004
  Transmission Date: 20120403
  Serious: Yes (Other)
  Sender: FDA-Public Use
  Company Number: US-JNJFOC-20111002838

PATIENT
  Sex: Male
  Weight: 83.46 kg

DRUGS (4)
  1. ZYTIGA [Suspect]
     Indication: PROSTATE CANCER
     Route: 048
     Dates: start: 20110501
  2. ZOMETA [Concomitant]
     Indication: BONE DISORDER
     Route: 042
  3. LUPRON [Concomitant]
     Indication: BLOOD TESTOSTERONE
     Route: 050
  4. METHADONE HCL [Concomitant]
     Indication: PAIN
     Route: 048

REACTIONS (4)
  - HYPOKALAEMIA [None]
  - BLOOD PRESSURE FLUCTUATION [None]
  - ASTHENIA [None]
  - NAUSEA [None]
